FAERS Safety Report 7106446-5 (Version None)
Quarter: 2010Q4

REPORT INFORMATION
  Report Type: 
  Country: None (occurrence: None)
  Receive Date: 20101116
  Receipt Date: 20101110
  Transmission Date: 20110411
  Serious: Yes (Other)
  Sender: FDA-Public Use
  Company Number: US-AMGEN-US367352

PATIENT

DRUGS (8)
  1. DENOSUMAB [Suspect]
     Indication: PROSTATE CANCER
     Dosage: UNK BLINDED, QMO
     Route: 058
     Dates: start: 20061020, end: 20081024
  2. HYDROCHLOROTHIAZIDE [Concomitant]
  3. LISINOPRIL [Concomitant]
  4. CALCIUM [Concomitant]
  5. ERGOCALCIFEROL [Concomitant]
  6. CHLORHEXIDINE GLUCONATE [Concomitant]
     Dosage: UNK UNK, UNK
  7. IBUPROFEN [Concomitant]
     Dosage: UNK UNK, PRN
  8. TOPROL-XL [Concomitant]

REACTIONS (2)
  - OSTEONECROSIS OF JAW [None]
  - TONGUE ULCERATION [None]
